FAERS Safety Report 14068279 (Version 1)
Quarter: 2017Q4

REPORT INFORMATION
  Report Type: Spontaneous
  Country: US (occurrence: None)
  Receive Date: 20171010
  Receipt Date: 20171010
  Transmission Date: 20180321
  Serious: Yes (Death)
  Sender: FDA-Public Use
  Company Number: None

PATIENT
  Age: 79 Year
  Sex: Male

DRUGS (1)
  1. PROLIA [Suspect]
     Active Substance: DENOSUMAB
     Indication: OSTEOPOROSIS
     Dosage: 60 MG EVERY SIX MONTHS UNDER THE SKIN
     Route: 058
     Dates: start: 201602, end: 201703

REACTIONS (1)
  - Death [None]

NARRATIVE: CASE EVENT DATE: 20170322
